FAERS Safety Report 9522929 (Version 5)
Quarter: 2014Q1

REPORT INFORMATION
  Report Type: Report from Study
  Country: FR (occurrence: FR)
  Receive Date: 20130913
  Receipt Date: 20140306
  Transmission Date: 20141002
  Serious: Yes (Hospitalization, Disabling)
  Sender: FDA-Public Use
  Company Number: FR-CELGENEUS-056-C5013-13040876

PATIENT
  Age: 68 Year
  Sex: Male

DRUGS (7)
  1. CC-5013 [Suspect]
     Indication: CHRONIC LYMPHOCYTIC LEUKAEMIA
     Route: 048
     Dates: start: 20110131
  2. CC-5013 [Suspect]
     Route: 048
     Dates: start: 20130128, end: 20130225
  3. ZELITREX [Concomitant]
     Indication: ANTIBIOTIC PROPHYLAXIS
     Dosage: 1 CAPSULE
     Route: 048
  4. CRESTOR [Concomitant]
     Indication: HYPERLIPIDAEMIA
     Dosage: 1 CAPSULE
     Route: 048
  5. NEBIVOLOL [Concomitant]
     Indication: CARDIOVASCULAR DISORDER
     Dosage: 1 CAPSULE
     Route: 048
  6. KARDEGIC [Concomitant]
     Indication: CARDIOVASCULAR DISORDER
     Dosage: 160 MILLIGRAM
     Route: 048
  7. BACTRIN [Concomitant]
     Indication: ANTIBIOTIC PROPHYLAXIS
     Route: 048

REACTIONS (1)
  - Tuberculosis of peripheral lymph nodes [Recovered/Resolved]
